FAERS Safety Report 4401147-6 (Version None)
Quarter: 2004Q3

REPORT INFORMATION
  Report Type: 
  Country: None (occurrence: None)
  Receive Date: 20040907
  Receipt Date: 20031118
  Transmission Date: 20050211
  Serious: No
  Sender: FDA-Public Use
  Company Number: US-BRISTOL-MYERS SQUIBB COMPANY-12438867

PATIENT
  Sex: Male

DRUGS (4)
  1. COUMADIN [Suspect]
     Indication: CORONARY ARTERY SURGERY
     Dosage: PREVIOUSLY BROKE 5 MG TABLET IN HALF (SINCE 1998)
     Route: 048
     Dates: start: 20030701
  2. MAXZIDE [Suspect]
  3. COMBIVENT [Concomitant]
     Route: 055
  4. ZOCOR [Concomitant]

REACTIONS (2)
  - BRONCHITIS [None]
  - RASH [None]
